FAERS Safety Report 25927693 (Version 1)
Quarter: 2025Q4

REPORT INFORMATION
  Report Type: Other
  Country: EU (occurrence: EU)
  Receive Date: 20251016
  Receipt Date: 20251016
  Transmission Date: 20260117
  Serious: Yes (Hospitalization)
  Sender: ANI
  Company Number: EU-ANIPHARMA-030899

PATIENT
  Sex: Female

DRUGS (5)
  1. TEMOZOLOMIDE [Suspect]
     Active Substance: TEMOZOLOMIDE
     Indication: Neuroblastoma
     Dosage: TOTEM REGIMEN
  2. CYCLOPHOSPHAMIDE [Suspect]
     Active Substance: CYCLOPHOSPHAMIDE
     Indication: Neuroblastoma
     Dosage: TOPOCYCLO REGIMEN (6 CYCLES)
  3. TOPOTECAN [Concomitant]
     Active Substance: TOPOTECAN HYDROCHLORIDE
     Indication: Neuroblastoma
     Dosage: TOTEM REGIMEN
  4. DINUTUXIMAB BETA [Concomitant]
     Active Substance: DINUTUXIMAB BETA
     Indication: Neuroblastoma
  5. TOPOTECAN [Concomitant]
     Active Substance: TOPOTECAN HYDROCHLORIDE
     Indication: Neuroblastoma
     Dosage: TOPOCYCLO REGIMEN (6 CYCLES)

REACTIONS (2)
  - Therapy partial responder [Unknown]
  - Disease progression [Unknown]
